FAERS Safety Report 9564016 (Version 1)
Quarter: 2013Q3

REPORT INFORMATION
  Report Type: Report from Study
  Country: CA (occurrence: CA)
  Receive Date: 20130928
  Receipt Date: 20130928
  Transmission Date: 20140515
  Serious: Yes (Hospitalization)
  Sender: FDA-Public Use
  Company Number: CA-ROCHE-1281136

PATIENT
  Age: 71 Year
  Sex: Female
  Weight: 63 kg

DRUGS (14)
  1. RITUXIMAB [Suspect]
     Indication: PRODUCT USED FOR UNKNOWN INDICATION
     Route: 042
  2. PREDNISOLONE [Suspect]
     Indication: PRODUCT USED FOR UNKNOWN INDICATION
     Route: 065
  3. CYCLOPHOSPHAMIDE [Suspect]
     Indication: PRODUCT USED FOR UNKNOWN INDICATION
     Route: 065
  4. VINCRISTINE SULFATE [Suspect]
     Indication: PRODUCT USED FOR UNKNOWN INDICATION
     Route: 065
  5. ACEBUTOLOL HYDROCHLORIDE [Concomitant]
     Route: 065
  6. ACETAMINOPHEN [Concomitant]
     Route: 065
  7. DOMPERIDONE [Concomitant]
     Route: 065
  8. DOXYCYCLINE [Concomitant]
     Route: 065
  9. ELMIRON [Concomitant]
     Dosage: 100 MG TABLET
     Route: 065
  10. LISINOPRIL [Concomitant]
     Route: 065
  11. ROSUVASTATIN [Concomitant]
     Route: 065
  12. SYNTHROID [Concomitant]
     Route: 065
  13. VENLAFAXINE [Concomitant]
     Route: 065
  14. ZYLOPRIM [Concomitant]
     Route: 065

REACTIONS (1)
  - Urinary retention [Recovered/Resolved]
